FAERS Safety Report 9276812 (Version 1)
Quarter: 2013Q2

REPORT INFORMATION
  Report Type: Spontaneous
  Country: US (occurrence: None)
  Receive Date: 20130501
  Receipt Date: 20130501
  Transmission Date: 20140414
  Serious: Yes (Hospitalization)
  Sender: FDA-Public Use
  Company Number: 13-F-US-00107

PATIENT
  Sex: Male

DRUGS (2)
  1. FOLOTYN [Suspect]
     Route: 042
     Dates: start: 20130327, end: 20130327
  2. FOLOTYN [Suspect]
     Route: 042
     Dates: start: 20130327, end: 20130327

REACTIONS (2)
  - Mycosis fungoides [None]
  - Disease progression [None]
